FAERS Safety Report 5517907-4 (Version None)
Quarter: 2007Q4

REPORT INFORMATION
  Report Type: 
  Country: None (occurrence: None)
  Receive Date: 20071113
  Receipt Date: 20071029
  Transmission Date: 20080405
  Serious: Yes (Death)
  Sender: FDA-Public Use
  Company Number: GXKR2007US09162

PATIENT
  Age: 56 Year
  Sex: Male

DRUGS (4)
  1. CYCLOSPORINE [Suspect]
     Indication: IMMUNOSUPPRESSION
     Dosage: 100MG, QD;
  2. MYCOPHENOLATE MOFETIL [Suspect]
     Indication: IMMUNOSUPPRESSION
     Dosage: 750 MG, BID;, 250 MG BID, ORAL
     Route: 048
  3. PREDNISONE [Suspect]
     Indication: IMMUNOSUPPRESSION
     Dosage: 5MG,QD;
  4. DACLIZUMAB(DACLIZUMAB) [Suspect]
     Indication: IMMUNOSUPPRESSION

REACTIONS (11)
  - DIARRHOEA [None]
  - ENCEPHALITIS VIRAL [None]
  - GRAND MAL CONVULSION [None]
  - INTUBATION [None]
  - MENTAL STATUS CHANGES [None]
  - NAUSEA [None]
  - PNEUMONIA VIRAL [None]
  - PYREXIA [None]
  - STATUS EPILEPTICUS [None]
  - VOMITING [None]
  - WEST NILE VIRAL INFECTION [None]
